FAERS Safety Report 18918047 (Version 2)
Quarter: 2021Q1

REPORT INFORMATION
  Report Type: Report from Study
  Country: US (occurrence: US)
  Receive Date: 20210220
  Receipt Date: 20210324
  Transmission Date: 20210420
  Serious: Yes (Life-Threatening, Hospitalization, Other)
  Sender: FDA-Public Use
  Company Number: US-AMGEN-USASL2020201992

PATIENT
  Age: 70 Year
  Sex: Male

DRUGS (4)
  1. PREDNISONE. [Concomitant]
     Active Substance: PREDNISONE
     Dosage: 40 UNK
  2. NPLATE [Suspect]
     Active Substance: ROMIPLOSTIM
     Indication: PLATELET COUNT DECREASED
     Dosage: UNK, Q2WK
     Route: 065
  3. NPLATE [Suspect]
     Active Substance: ROMIPLOSTIM
     Indication: IMMUNE THROMBOCYTOPENIA
     Dosage: UNK, QMO
     Route: 065
  4. PREDNISONE. [Concomitant]
     Active Substance: PREDNISONE
     Dosage: 10 MILLIGRAM

REACTIONS (10)
  - Platelet count increased [Recovering/Resolving]
  - Haemoptysis [Unknown]
  - Catheterisation cardiac [Unknown]
  - Fatigue [Not Recovered/Not Resolved]
  - Skin cancer [Unknown]
  - Peripheral ischaemia [Unknown]
  - Pneumonia bacterial [Unknown]
  - Myocardial infarction [Unknown]
  - SARS-CoV-2 test positive [Recovered/Resolved]
  - Herpes zoster [Unknown]

NARRATIVE: CASE EVENT DATE: 201912
